FAERS Safety Report 23361734 (Version 1)
Quarter: 2024Q1

REPORT INFORMATION
  Report Type: Spontaneous
  Country: US (occurrence: None)
  Receive Date: 20240102
  Receipt Date: 20240102
  Transmission Date: 20240409
  Serious: Yes (Hospitalization)
  Sender: FDA-Public Use
  Company Number: None

PATIENT
  Age: 62 Year
  Sex: Female
  Weight: 49.4 kg

DRUGS (2)
  1. NIVOLUMAB [Suspect]
     Active Substance: NIVOLUMAB
     Indication: Small cell lung cancer
     Dosage: OTHER FREQUENCY : Q28 DAYS;?
     Route: 042
     Dates: start: 20220414, end: 20231120
  2. RUCAPARIB [Suspect]
     Active Substance: RUCAPARIB
     Indication: Small cell lung cancer
     Dosage: FREQUENCY : TWICE A DAY;?
     Route: 048
     Dates: start: 20220414, end: 20230109

REACTIONS (8)
  - Chest pain [None]
  - Nausea [None]
  - Vomiting [None]
  - Diarrhoea [None]
  - Hyperhidrosis [None]
  - Electrocardiogram ST-T change [None]
  - Myocardial infarction [None]
  - Myocarditis [None]

NARRATIVE: CASE EVENT DATE: 20231220
